FAERS Safety Report 9370941 (Version 4)
Quarter: 2013Q4

REPORT INFORMATION
  Report Type: Spontaneous
  Country: GB (occurrence: GB)
  Receive Date: 20130627
  Receipt Date: 20131208
  Transmission Date: 20140711
  Serious: Yes (Disabling)
  Sender: FDA-Public Use
  Company Number: GB-ROCHE-1241479

PATIENT
  Sex: Female

DRUGS (11)
  1. LUCENTIS [Suspect]
     Indication: MACULAR DEGENERATION
     Route: 050
     Dates: start: 2012
  2. VENTOLIN [Concomitant]
  3. PARACETAMOL [Concomitant]
     Route: 065
  4. SIMVASTATIN [Concomitant]
     Route: 065
  5. CLOPIDOGREL [Concomitant]
     Route: 065
  6. SALMETEROL [Concomitant]
     Route: 065
  7. QUININE [Concomitant]
     Route: 065
  8. LOSARTAN [Concomitant]
     Route: 065
  9. CLENIL (UNITED KINGDOM) [Concomitant]
     Route: 065
  10. CETRIZINE [Concomitant]
     Route: 065
  11. FYBOGEL [Concomitant]

REACTIONS (3)
  - Dermatitis allergic [Not Recovered/Not Resolved]
  - Weight abnormal [Unknown]
  - Vein disorder [Not Recovered/Not Resolved]
